FAERS Safety Report 9676500 (Version 2)
Quarter: 2013Q4

REPORT INFORMATION
  Report Type: Spontaneous
  Country: US (occurrence: US)
  Receive Date: 20131107
  Receipt Date: 20131107
  Transmission Date: 20140711
  Serious: Yes (Other)
  Sender: FDA-Public Use
  Company Number: US-GILEAD-2013-0078661

PATIENT
  Age: 60 Year
  Sex: Female

DRUGS (1)
  1. CAYSTON [Suspect]
     Indication: BRONCHIECTASIS
     Dosage: 75 MG, UNK
     Route: 055

REACTIONS (1)
  - Bronchiectasis [Unknown]
